FAERS Safety Report 9656360 (Version 1)
Quarter: 2013Q4

REPORT INFORMATION
  Report Type: Spontaneous
  Country: US (occurrence: US)
  Receive Date: 20131030
  Receipt Date: 20131030
  Transmission Date: 20140711
  Serious: No
  Sender: FDA-Public Use
  Company Number: US-PFIZER INC-2013306320

PATIENT
  Age: 50 Year
  Sex: Female
  Weight: 48.07 kg

DRUGS (1)
  1. PREMARIN [Suspect]
     Indication: POSTOPERATIVE CARE
     Dosage: 1.25 MG, 1X/DAY
     Route: 048

REACTIONS (2)
  - Migraine [Unknown]
  - Fall [Unknown]
